FAERS Safety Report 16966569 (Version 1)
Quarter: 2019Q4

REPORT INFORMATION
  Report Type: Spontaneous
  Country: MX (occurrence: MX)
  Receive Date: 20191028
  Receipt Date: 20191028
  Transmission Date: 20200122
  Serious: Yes (Hospitalization, Other)
  Sender: FDA-Public Use
  Company Number: MX-PFIZER INC-2019339295

PATIENT
  Age: 7 Year
  Sex: Male
  Weight: 24 kg

DRUGS (3)
  1. XYNTHA [Suspect]
     Active Substance: ANTIHEMOPHILIC FACTOR, HUMAN RECOMBINANT RESIDUES 743-1636 DELETED
     Indication: FACTOR VIII DEFICIENCY
     Dosage: 1000 IU, 2 TIMES A WEEK
     Route: 042
  2. XYNTHA [Suspect]
     Active Substance: ANTIHEMOPHILIC FACTOR, HUMAN RECOMBINANT RESIDUES 743-1636 DELETED
     Dosage: 1000 IU 1X/WEEK
     Route: 042
  3. XYNTHA [Suspect]
     Active Substance: ANTIHEMOPHILIC FACTOR, HUMAN RECOMBINANT RESIDUES 743-1636 DELETED
     Dosage: 3500 IU 2 TIMES A WEEK
     Route: 042

REACTIONS (6)
  - Haemarthrosis [Recovered/Resolved]
  - Fall [Recovered/Resolved]
  - Haematoma [Unknown]
  - Drug ineffective [Unknown]
  - Joint injury [Unknown]
  - Pain [Unknown]

NARRATIVE: CASE EVENT DATE: 20190816
